FAERS Safety Report 11525498 (Version 1)
Quarter: 2015Q3

REPORT INFORMATION
  Report Type: Spontaneous
  Country: FI (occurrence: FI)
  Receive Date: 20150918
  Receipt Date: 20150918
  Transmission Date: 20151125
  Serious: No
  Sender: FDA-Public Use
  Company Number: FI-LINDE GAS NORTH AMERICA LLC-FI-LHC-2015123

PATIENT
  Age: 77 Year
  Sex: Male

DRUGS (1)
  1. CONOXIA [Suspect]
     Active Substance: OXYGEN
     Indication: OXYGEN SUPPLEMENTATION
     Dates: start: 20150810

REACTIONS (3)
  - Device failure [None]
  - Oxygen saturation decreased [Recovered/Resolved]
  - Product quality issue [None]

NARRATIVE: CASE EVENT DATE: 20150829
